FAERS Safety Report 16031706 (Version 1)
Quarter: 2019Q1

REPORT INFORMATION
  Report Type: Spontaneous
  Country: IT (occurrence: IT)
  Receive Date: 20190304
  Receipt Date: 20190304
  Transmission Date: 20190418
  Serious: Yes (Hospitalization)
  Sender: FDA-Public Use
  Company Number: IT-PFIZER INC-2019090884

PATIENT
  Age: 55 Year
  Sex: Female

DRUGS (2)
  1. NORVASC [Suspect]
     Active Substance: AMLODIPINE BESYLATE
     Indication: SUBSTANCE ABUSE
     Dosage: 3 DF, SINGLE
     Route: 048
     Dates: start: 20190204, end: 20190204
  2. TOTALIP [Suspect]
     Active Substance: ATORVASTATIN
     Indication: SUBSTANCE ABUSE
     Dosage: 5 DF, SINGLE
     Route: 048
     Dates: start: 20190204, end: 20190204

REACTIONS (4)
  - Headache [Recovered/Resolved]
  - Product use in unapproved indication [Unknown]
  - Malaise [Recovered/Resolved]
  - Substance abuse [Recovered/Resolved]

NARRATIVE: CASE EVENT DATE: 20190204
